FAERS Safety Report 7206344-2 (Version None)
Quarter: 2011Q1

REPORT INFORMATION
  Report Type: 
  Country: None (occurrence: None)
  Receive Date: 20110103
  Receipt Date: 20110103
  Transmission Date: 20110831
  Serious: Yes (Hospitalization)
  Sender: FDA-Public Use
  Company Number: PHHO2008IL04575

PATIENT
  Weight: 57 kg

DRUGS (2)
  1. AFINITOR [Suspect]
     Indication: CARCINOID TUMOUR
     Dosage: CODE NOT BROKEN
     Route: 048
     Dates: start: 20071119
  2. SANDOSTATIN LAR [Suspect]
     Indication: CARCINOID TUMOUR
     Dosage: UNK, UNK
     Route: 048
     Dates: start: 20071119

REACTIONS (7)
  - PULMONARY CONGESTION [None]
  - EXERCISE TOLERANCE DECREASED [None]
  - ANAEMIA [None]
  - FATIGUE [None]
  - OEDEMA PERIPHERAL [None]
  - DYSPNOEA [None]
  - HAEMOGLOBIN DECREASED [None]
